FAERS Safety Report 4839008-0 (Version None)
Quarter: 2005Q4

REPORT INFORMATION
  Report Type: 
  Country: None (occurrence: None)
  Receive Date: 20051129
  Receipt Date: 20051114
  Transmission Date: 20060501
  Serious: Yes (Hospitalization)
  Sender: FDA-Public Use
  Company Number: GBWYE140615NOV05

PATIENT
  Sex: Female
  Weight: 53 kg

DRUGS (5)
  1. ENBREL [Suspect]
     Indication: RHEUMATOID ARTHRITIS
     Route: 058
     Dates: start: 20030515, end: 20050914
  2. CELEBREX [Concomitant]
     Dosage: UNKNOWN
  3. CO-DYDRAMOL [Concomitant]
     Dosage: UNKNOWN
  4. FOLIC ACID [Concomitant]
     Dosage: UNKNOWN
  5. METHOTREXATE [Concomitant]

REACTIONS (1)
  - PSYCHOTIC DISORDER [None]
